FAERS Safety Report 8775449 (Version 2)
Quarter: 2012Q4

REPORT INFORMATION
  Report Type: 
  Country: US (occurrence: US)
  Receive Date: 20120909
  Receipt Date: 20120910
  Transmission Date: 20130627
  Serious: Yes (Hospitalization)
  Sender: FDA-Public Use
  Company Number: US-ABBOTT-12P-163-0975612-00

PATIENT

DRUGS (1)
  1. HUMIRA 40 MG/ 0.8 ML PRE-FILLED SYRINGE [Suspect]
     Indication: PRODUCT USED FOR UNKNOWN INDICATION

REACTIONS (16)
  - Dehydration [Unknown]
  - Hyperhidrosis [Unknown]
  - Feeling cold [Unknown]
  - Fatigue [Unknown]
  - Affect lability [Unknown]
  - Tearfulness [Unknown]
  - Blood pressure fluctuation [Unknown]
  - Discomfort [Unknown]
  - Flushing [Unknown]
  - Nausea [Unknown]
  - Vomiting [Unknown]
  - Hypophagia [Unknown]
  - Arthritis [Not Recovered/Not Resolved]
  - Lupus-like syndrome [Unknown]
  - Fluid intake reduced [Unknown]
  - Erythema [Not Recovered/Not Resolved]
